FAERS Safety Report 20140698 (Version 1)
Quarter: 2021Q4

REPORT INFORMATION
  Report Type: Spontaneous
  Country: BR (occurrence: BR)
  Receive Date: 20211202
  Receipt Date: 20211202
  Transmission Date: 20220303
  Serious: Yes (Other)
  Sender: FDA-Public Use
  Company Number: BR-NOVARTISPH-NVSC2019BR045930

PATIENT
  Sex: Female
  Weight: 55 kg

DRUGS (1)
  1. TIMOLOL\TRAVOPROST [Suspect]
     Active Substance: TIMOLOL\TRAVOPROST
     Indication: Glaucoma
     Dosage: UNK UNK, BID ( 10 YEARS AGO)
     Route: 065

REACTIONS (2)
  - Drug dependence [Not Recovered/Not Resolved]
  - Visual impairment [Not Recovered/Not Resolved]
